FAERS Safety Report 7204096-3 (Version None)
Quarter: 2010Q4

REPORT INFORMATION
  Report Type: 
  Country: None (occurrence: None)
  Receive Date: 20101230
  Receipt Date: 20101220
  Transmission Date: 20110411
  Serious: Yes (Other)
  Sender: FDA-Public Use
  Company Number: US-ROCHE-609358

PATIENT
  Sex: Female
  Weight: 79.8 kg

DRUGS (18)
  1. BEVACIZUMAB [Suspect]
     Indication: NON-SMALL CELL LUNG CANCER
     Dosage: 864 MG, Q3W
     Route: 042
     Dates: start: 20071002
  2. ERLOTINIB [Suspect]
     Indication: NON-SMALL CELL LUNG CANCER
     Dosage: 100 MG, QD
     Route: 048
     Dates: start: 20080111
  3. GEMCITABINE [Concomitant]
     Indication: NON-SMALL CELL LUNG CANCER
     Dosage: 1000 MG/M2, UNK
     Route: 042
  4. CARBOPLATIN [Concomitant]
     Indication: NON-SMALL CELL LUNG CANCER
     Dosage: 5 AUC, UNK
     Route: 042
  5. PACLITAXEL [Concomitant]
     Indication: NON-SMALL CELL LUNG CANCER
     Dosage: 175 MG/M2, UNK
     Route: 042
  6. CIMETIDINE [Concomitant]
     Dosage: 300 MG, UNK
     Route: 042
  7. DIPHENHYDRAMINE HYDROCHLORIDE [Concomitant]
     Dosage: 50 MG, UNK
     Route: 042
  8. DEXAMETHASONE [Concomitant]
     Dosage: 10 MG, UNK
     Route: 042
  9. PALONOSETRON [Concomitant]
     Dosage: 0.25 MG, UNK
     Route: 042
  10. PRILOSEC [Concomitant]
     Dosage: 20 MG, QD
     Route: 048
  11. LORAZEPAM [Concomitant]
     Dosage: 2 MG, QD
     Route: 048
  12. POTASSIUM [Concomitant]
     Dosage: 20 MG, BID
     Route: 048
  13. LASIX [Concomitant]
     Dosage: 60 MG, BID
  14. LYRICA [Concomitant]
     Dosage: 25 MG, QD
     Route: 048
  15. ZYRTEC [Concomitant]
     Dosage: UNK
     Route: 048
  16. AVINZA [Concomitant]
     Dosage: 270 MG, QD
     Route: 048
  17. CYMBALTA [Concomitant]
     Dosage: 60 MG, QD
     Route: 048
  18. FENTANYL-100 [Concomitant]

REACTIONS (3)
  - COGNITIVE DISORDER [None]
  - HEADACHE [None]
  - MEMORY IMPAIRMENT [None]
